FAERS Safety Report 19327537 (Version 3)
Quarter: 2021Q2

REPORT INFORMATION
  Report Type: Other
  Country: US (occurrence: US)
  Receive Date: 20210528
  Receipt Date: 20210614
  Transmission Date: 20210717
  Serious: Yes (Hospitalization)
  Sender: FDA-Public Use
  Company Number: US-ROCHE-2835985

PATIENT
  Age: 63 Year
  Sex: Female
  Weight: 118.04 kg

DRUGS (6)
  1. OCREVUS [Suspect]
     Active Substance: OCRELIZUMAB
     Indication: PRIMARY PROGRESSIVE MULTIPLE SCLEROSIS
     Dosage: ONGOING YES?DATE OF TREATMENT: 19/APR/2019, 18/SEP/2019, 18/OCT/2019, 13/MAY/2020, 10/NOV/2020, 28/M
     Route: 042
     Dates: start: 20190405
  2. KLONOPIN [Suspect]
     Active Substance: CLONAZEPAM
     Indication: RESTLESS LEGS SYNDROME
     Dosage: AT BEDTIME
     Route: 048
  3. OTEZLA [Concomitant]
     Active Substance: APREMILAST
     Indication: PSORIASIS
     Route: 048
  4. METFORMIN [Concomitant]
     Active Substance: METFORMIN HYDROCHLORIDE
     Indication: GLUCOSE TOLERANCE IMPAIRED
     Route: 048
  5. PFIZER?BIONTECH COVID?19 VACCINE [Suspect]
     Active Substance: TOZINAMERAN
     Indication: IMMUNISATION
     Route: 030
     Dates: end: 20210503
  6. DULOXETINE. [Concomitant]
     Active Substance: DULOXETINE
     Indication: FIBROMYALGIA
     Route: 048

REACTIONS (7)
  - Injection site mass [Recovering/Resolving]
  - Ear infection [Not Recovered/Not Resolved]
  - Pain in extremity [Not Recovered/Not Resolved]
  - Off label use [Unknown]
  - Rash pruritic [Recovering/Resolving]
  - Mastoiditis [Recovering/Resolving]
  - Gait disturbance [Recovering/Resolving]

NARRATIVE: CASE EVENT DATE: 202105
